FAERS Safety Report 8227913-7 (Version None)
Quarter: 2012Q1

REPORT INFORMATION
  Report Type: 
  Country: None (occurrence: None)
  Receive Date: 20120322
  Receipt Date: 20110805
  Transmission Date: 20120608
  Serious: No
  Sender: FDA-Public Use
  Company Number: US-ABBOTT-11P-163-0841692-00

PATIENT
  Sex: Male
  Weight: 90.8 kg

DRUGS (8)
  1. GENERIC TARKA [Concomitant]
     Indication: HYPERTENSION
     Dates: start: 20110701
  2. LIPITOR [Concomitant]
     Indication: PRODUCT USED FOR UNKNOWN INDICATION
     Route: 048
  3. TARKA [Suspect]
     Indication: HEART RATE IRREGULAR
  4. CLONIDINE [Concomitant]
     Indication: PRODUCT USED FOR UNKNOWN INDICATION
     Route: 048
  5. NEXIUM [Concomitant]
     Indication: PRODUCT USED FOR UNKNOWN INDICATION
     Route: 048
  6. ASPIRIN [Concomitant]
     Indication: PRODUCT USED FOR UNKNOWN INDICATION
     Route: 048
  7. TARKA [Suspect]
     Indication: HYPERTENSION
     Dosage: 2/240 MILLIGRAM
     Route: 048
     Dates: start: 20080101, end: 20110701
  8. GENERIC TARKA [Concomitant]
     Indication: HEART RATE IRREGULAR

REACTIONS (6)
  - MALAISE [None]
  - DIZZINESS [None]
  - BLOOD PRESSURE INCREASED [None]
  - TABLET PHYSICAL ISSUE [None]
  - CHEST DISCOMFORT [None]
  - ASTHENIA [None]
